FAERS Safety Report 5588010-2 (Version None)
Quarter: 2008Q1

REPORT INFORMATION
  Report Type: 
  Country: None (occurrence: None)
  Receive Date: 20080111
  Receipt Date: 20071228
  Transmission Date: 20080703
  Serious: Yes (Other)
  Sender: FDA-Public Use
  Company Number: US-PFIZER INC-2008000182

PATIENT
  Sex: Female

DRUGS (3)
  1. DILANTIN [Suspect]
     Indication: CONVULSION
     Route: 048
  2. ADDERALL 10 [Concomitant]
  3. THYROID HORMONES [Concomitant]

REACTIONS (2)
  - DELIRIUM [None]
  - DISORIENTATION [None]
